FAERS Safety Report 8012272-5 (Version None)
Quarter: 2011Q4

REPORT INFORMATION
  Report Type: 
  Country: None (occurrence: None)
  Receive Date: 20111228
  Receipt Date: 20111227
  Transmission Date: 20120403
  Serious: Yes (Life-Threatening, Hospitalization)
  Sender: FDA-Public Use
  Company Number: JP-ELI_LILLY_AND_COMPANY-JP201111006508

PATIENT
  Sex: Female
  Weight: 52.8 kg

DRUGS (8)
  1. GEMZAR [Suspect]
     Indication: BREAST CANCER RECURRENT
     Dosage: 1460 MG, OTHER
     Route: 042
     Dates: start: 20111102, end: 20111102
  2. ACETAMINOPHEN [Concomitant]
     Indication: CANCER PAIN
     Dosage: 0.8 G, QID
     Route: 048
     Dates: start: 20110216
  3. FENTANYL-100 [Concomitant]
     Indication: CANCER PAIN
     Dosage: 6.3 MG, OTHER
     Route: 062
     Dates: start: 20110926
  4. FAMOTIDINE [Concomitant]
     Indication: PROPHYLAXIS
     Dosage: 20 MG, BID
     Route: 048
     Dates: start: 20110727
  5. LYRICA [Concomitant]
     Indication: CANCER PAIN
     Dosage: 150 MG, BID
     Route: 048
     Dates: start: 20110923
  6. REBAMIPIDE [Concomitant]
     Indication: PROPHYLAXIS
     Dosage: 100 MG, QID
     Route: 048
     Dates: start: 20110114
  7. LOXOPROFEN [Concomitant]
     Indication: CANCER PAIN
     Dosage: 60 MG, QID
     Route: 048
     Dates: start: 20110114
  8. PACLITAXEL [Concomitant]
     Indication: BREAST CANCER RECURRENT
     Dosage: 146 MG, OTHER
     Route: 042
     Dates: start: 20111102, end: 20111102

REACTIONS (10)
  - DYSPNOEA [None]
  - CHEST X-RAY ABNORMAL [None]
  - COMPUTERISED TOMOGRAM ABNORMAL [None]
  - PLEURAL EFFUSION [None]
  - PNEUMOCYSTIS JIROVECI PNEUMONIA [None]
  - BLOOD BETA-D-GLUCAN INCREASED [None]
  - PYREXIA [None]
  - PLATELET COUNT DECREASED [None]
  - CELL MARKER INCREASED [None]
  - INTERSTITIAL LUNG DISEASE [None]
